FAERS Safety Report 14412984 (Version 1)
Quarter: 2018Q1

REPORT INFORMATION
  Report Type: Spontaneous
  Country: SE (occurrence: SE)
  Receive Date: 20180119
  Receipt Date: 20180119
  Transmission Date: 20180509
  Serious: Yes (Hospitalization)
  Sender: FDA-Public Use
  Company Number: SE-TEVA-2018-SE-845926

PATIENT
  Age: 34 Year
  Sex: Male

DRUGS (2)
  1. NAPROXEN. [Suspect]
     Active Substance: NAPROXEN
     Route: 048
  2. IPREN [Concomitant]
     Active Substance: IBUPROFEN
     Route: 048

REACTIONS (2)
  - Gastric ulcer [Recovered/Resolved]
  - Acute kidney injury [Recovered/Resolved]
